FAERS Safety Report 13338570 (Version 2)
Quarter: 2017Q1

REPORT INFORMATION
  Report Type: Spontaneous
  Country: JP (occurrence: JP)
  Receive Date: 20170315
  Receipt Date: 20170321
  Transmission Date: 20170428
  Serious: Yes (Hospitalization)
  Sender: FDA-Public Use
  Company Number: JP-JNJFOC-20170312211

PATIENT
  Age: 60 Year
  Sex: Female

DRUGS (6)
  1. HALOMONTH [Suspect]
     Active Substance: HALOPERIDOL DECANOATE
     Indication: SCHIZOPHRENIA
     Route: 030
     Dates: start: 2017, end: 201702
  2. LONASEN [Suspect]
     Active Substance: BLONANSERIN
     Indication: SCHIZOPHRENIA
     Route: 048
     Dates: start: 201702
  3. LONASEN [Suspect]
     Active Substance: BLONANSERIN
     Indication: SCHIZOPHRENIA
     Route: 048
     Dates: end: 201702
  4. LULLAN [Suspect]
     Active Substance: PEROSPIRONE HYDROCHLORIDE
     Indication: SCHIZOPHRENIA
     Route: 048
  5. HALOMONTH [Suspect]
     Active Substance: HALOPERIDOL DECANOATE
     Indication: SCHIZOPHRENIA
     Route: 030
     Dates: start: 2017, end: 201702
  6. LULLAN [Suspect]
     Active Substance: PEROSPIRONE HYDROCHLORIDE
     Indication: SCHIZOPHRENIA
     Route: 048
     Dates: start: 201702

REACTIONS (1)
  - Hypokinesia [Recovered/Resolved]

NARRATIVE: CASE EVENT DATE: 201702
